FAERS Safety Report 14343868 (Version 1)
Quarter: 2018Q1

REPORT INFORMATION
  Report Type: Spontaneous
  Country: US (occurrence: US)
  Receive Date: 20180102
  Receipt Date: 20180102
  Transmission Date: 20180509
  Serious: No
  Sender: FDA-Public Use
  Company Number: US-GE HEALTHCARE LIFE SCIENCES-2017CSU004050

PATIENT
  Age: 70 Year
  Sex: Male

DRUGS (2)
  1. MEDROL [Concomitant]
     Active Substance: METHYLPREDNISOLONE
     Indication: PREMEDICATION
     Dosage: 32 MG, SINGLE
     Route: 048
     Dates: start: 20171208, end: 20171208
  2. VISIPAQUE [Suspect]
     Active Substance: IODIXANOL
     Indication: AORTIC ANEURYSM
     Dosage: 100 ML, SINGLE
     Route: 042
     Dates: start: 20171208, end: 20171208

REACTIONS (2)
  - Pruritus [Recovered/Resolved]
  - Urticaria [Recovered/Resolved]

NARRATIVE: CASE EVENT DATE: 20171208
